FAERS Safety Report 16077935 (Version 2)
Quarter: 2019Q2

REPORT INFORMATION
  Report Type: Spontaneous
  Country: US (occurrence: US)
  Receive Date: 20190315
  Receipt Date: 20190415
  Transmission Date: 20190711
  Serious: No
  Sender: FDA-Public Use
  Company Number: US-ASTRAZENECA-2018SE94698

PATIENT
  Age: 21169 Day
  Sex: Female
  Weight: 108.9 kg

DRUGS (2)
  1. METFORMIN [Concomitant]
     Active Substance: METFORMIN HYDROCHLORIDE
     Indication: DIABETES MELLITUS
     Dosage: UNKNOWN DOSE, AS NEEDED
     Route: 048
  2. BYDUREON BCISE [Suspect]
     Active Substance: EXENATIDE
     Indication: TYPE 2 DIABETES MELLITUS
     Route: 058
     Dates: start: 20180701

REACTIONS (8)
  - Device failure [Unknown]
  - Injection site bruising [Unknown]
  - Injection site extravasation [Unknown]
  - Blood glucose increased [Unknown]
  - Injection site haemorrhage [Recovered/Resolved]
  - Injection site mass [Unknown]
  - Device leakage [Unknown]
  - Device malfunction [Unknown]

NARRATIVE: CASE EVENT DATE: 20180722
